FAERS Safety Report 22001324 (Version 3)
Quarter: 2024Q2

REPORT INFORMATION
  Report Type: Spontaneous
  Country: IL (occurrence: IL)
  Receive Date: 20230216
  Receipt Date: 20240613
  Transmission Date: 20240716
  Serious: Yes (Hospitalization, Other)
  Sender: FDA-Public Use
  Company Number: IL-VERTEX PHARMACEUTICALS-2023-002159

PATIENT
  Age: 20 Year
  Sex: Female

DRUGS (4)
  1. TRIKAFTA [Suspect]
     Active Substance: ELEXACAFTOR\IVACAFTOR\TEZACAFTOR
     Indication: Cystic fibrosis
     Dosage: FULL DOSE
     Route: 048
     Dates: start: 202105
  2. TRIKAFTA [Suspect]
     Active Substance: ELEXACAFTOR\IVACAFTOR\TEZACAFTOR
     Dosage: REDUCED: 1 COMBINED PIL IN AM; 1 PILL (IVA) IN PM
     Route: 048
     Dates: start: 202201, end: 20220810
  3. TRIKAFTA [Suspect]
     Active Substance: ELEXACAFTOR\IVACAFTOR\TEZACAFTOR
     Dosage: PRESCRIBED HALF DOSE, BUT IN PRACTICE TOOK FULL DOSE
     Route: 048
     Dates: start: 202209, end: 202211
  4. TRIKAFTA [Suspect]
     Active Substance: ELEXACAFTOR\IVACAFTOR\TEZACAFTOR
     Dosage: FREQ UNK
     Route: 048
     Dates: start: 202301, end: 2023

REACTIONS (8)
  - Suicide attempt [Recovering/Resolving]
  - Obsessive thoughts [Recovering/Resolving]
  - Mental disorder [Unknown]
  - Anxiety [Recovering/Resolving]
  - Intrusive thoughts [Recovering/Resolving]
  - Psychotic disorder [Recovering/Resolving]
  - Depression [Unknown]
  - Forced expiratory volume decreased [Unknown]

NARRATIVE: CASE EVENT DATE: 20210101
